FAERS Safety Report 10942336 (Version 2)
Quarter: 2015Q2

REPORT INFORMATION
  Report Type: Spontaneous
  Country: US (occurrence: US)
  Receive Date: 20150322
  Receipt Date: 20150524
  Transmission Date: 20150821
  Serious: No
  Sender: FDA-Public Use
  Company Number: US-JNJFOC-20131205043

PATIENT
  Age: 76 Year
  Sex: Female
  Weight: 120.2 kg

DRUGS (2)
  1. INVOKANA [Suspect]
     Active Substance: CANAGLIFLOZIN
     Indication: DIABETES MELLITUS
     Route: 048
     Dates: start: 20131025, end: 20131122
  2. INVOKANA [Suspect]
     Active Substance: CANAGLIFLOZIN
     Indication: DIABETES MELLITUS
     Route: 048
     Dates: start: 20130819, end: 2013

REACTIONS (2)
  - Muscular weakness [Unknown]
  - Fungal infection [Unknown]

NARRATIVE: CASE EVENT DATE: 20131206
